FAERS Safety Report 18359524 (Version 1)
Quarter: 2020Q4

REPORT INFORMATION
  Report Type: Spontaneous
  Country: US (occurrence: US)
  Receive Date: 20201008
  Receipt Date: 20201008
  Transmission Date: 20210114
  Serious: No
  Sender: FDA-Public Use
  Company Number: US-HORIZON-ACT-0367-2020

PATIENT
  Age: 41 Year
  Sex: Male

DRUGS (1)
  1. ACTIMMUNE [Suspect]
     Active Substance: INTERFERON GAMMA-1B
     Indication: CUTANEOUS T-CELL LYMPHOMA
     Dosage: 100 MCG^S 3 TIMES WEEKLY

REACTIONS (2)
  - Off label use [Unknown]
  - COVID-19 [Unknown]
